FAERS Safety Report 25392726 (Version 1)
Quarter: 2025Q2

REPORT INFORMATION
  Report Type: Spontaneous
  Country: CN (occurrence: CN)
  Receive Date: 20250603
  Receipt Date: 20250603
  Transmission Date: 20250717
  Serious: Yes (Hospitalization)
  Sender: BEIGENE
  Company Number: CN-BEIGENE-BGN-2025-008542

PATIENT
  Age: 57 Year
  Weight: 50 kg

DRUGS (10)
  1. TISLELIZUMAB [Suspect]
     Active Substance: TISLELIZUMAB
     Indication: Lung neoplasm malignant
     Dosage: 200 MILLIGRAM, Q3WK
  2. TISLELIZUMAB [Suspect]
     Active Substance: TISLELIZUMAB
     Dosage: 200 MILLIGRAM, Q3WK
     Route: 041
  3. TISLELIZUMAB [Suspect]
     Active Substance: TISLELIZUMAB
     Dosage: 200 MILLIGRAM, Q3WK
     Route: 041
  4. TISLELIZUMAB [Suspect]
     Active Substance: TISLELIZUMAB
     Dosage: 200 MILLIGRAM, Q3WK
  5. CISPLATIN [Concomitant]
     Active Substance: CISPLATIN
     Indication: Lung neoplasm malignant
     Dosage: 40 MILLIGRAM, QD
  6. CISPLATIN [Concomitant]
     Active Substance: CISPLATIN
     Dosage: 40 MILLIGRAM, QD
     Route: 041
  7. CISPLATIN [Concomitant]
     Active Substance: CISPLATIN
     Dosage: 40 MILLIGRAM, QD
     Route: 041
  8. CISPLATIN [Concomitant]
     Active Substance: CISPLATIN
     Dosage: 40 MILLIGRAM, QD
  9. PACLITAXEL [Concomitant]
     Active Substance: PACLITAXEL
     Indication: Lung neoplasm malignant
     Dosage: 350 MILLIGRAM, QD
     Route: 041
  10. PACLITAXEL [Concomitant]
     Active Substance: PACLITAXEL
     Dosage: 350 MILLIGRAM, QD

REACTIONS (2)
  - Dermatitis bullous [Recovering/Resolving]
  - Pruritus [Recovering/Resolving]
